FAERS Safety Report 9355183 (Version 2)
Quarter: 2013Q2

REPORT INFORMATION
  Report Type: Report from Study
  Country: BR (occurrence: BR)
  Receive Date: 20130619
  Receipt Date: 20130628
  Transmission Date: 20140414
  Serious: Yes (Other)
  Sender: FDA-Public Use
  Company Number: PHHY2013BR045762

PATIENT
  Age: 51 Year
  Sex: Female
  Weight: 55 kg

DRUGS (5)
  1. ACLASTA [Suspect]
     Indication: OSTEOPOROSIS
     Dosage: 5 MG/ 100 ML, ONCE A YEAR
     Route: 042
     Dates: start: 20130430
  2. CLOXAZOLAM [Concomitant]
     Indication: ANXIETY
     Dosage: 1 MG, 1 TABLET DAILY
     Route: 048
     Dates: start: 20130417
  3. CITALOPRAM [Concomitant]
     Indication: ANXIETY
     Dosage: 10 MG, 1 TABLET DAILY
     Route: 048
     Dates: start: 20130417
  4. SERETAIDE [Concomitant]
     Indication: ASTHMA
     Dosage: 1 DF, ONLY WHEN PRESENTED EPISODES OF ASTHMA
  5. FLANCOX [Concomitant]
     Indication: CALCINOSIS
     Dosage: 400 MG, 2 TABLETS DAILY
     Route: 048
     Dates: start: 20130607

REACTIONS (10)
  - Tenosynovitis stenosans [Not Recovered/Not Resolved]
  - Calcinosis [Not Recovered/Not Resolved]
  - Pain in extremity [Not Recovered/Not Resolved]
  - Musculoskeletal pain [Not Recovered/Not Resolved]
  - Asthma [Unknown]
  - Headache [Recovered/Resolved]
  - Pain [Recovered/Resolved]
  - Vomiting [Recovered/Resolved]
  - Nausea [Recovered/Resolved]
  - Body temperature increased [Recovered/Resolved]
